FAERS Safety Report 8119801-1 (Version None)
Quarter: 2012Q1

REPORT INFORMATION
  Report Type: 
  Country: None (occurrence: None)
  Receive Date: 20120206
  Receipt Date: 20120206
  Transmission Date: 20120608
  Serious: No
  Sender: FDA-Public Use
  Company Number: None

PATIENT
  Age: 63 Year
  Sex: Male
  Weight: 88.6 kg

DRUGS (3)
  1. ZANTAC 150 [Suspect]
     Indication: GASTROOESOPHAGEAL REFLUX DISEASE
     Dosage: ZANTAC 150 MG TWICE A DAY 047 ORAL
     Route: 048
     Dates: start: 20110211, end: 20110701
  2. ZANTAC 150 [Suspect]
     Indication: GASTROOESOPHAGEAL REFLUX DISEASE
     Dosage: ZANTAC 150 MG TWICE A DAY 047 ORAL
     Route: 048
     Dates: start: 20050121, end: 20110701
  3. PRILOSEC [Suspect]
     Indication: GASTROOESOPHAGEAL REFLUX DISEASE
     Dosage: PRILOSEC OTC DAILY 047 ORAL
     Route: 048
     Dates: start: 20110211, end: 20110701

REACTIONS (3)
  - CONDITION AGGRAVATED [None]
  - GASTROOESOPHAGEAL REFLUX DISEASE [None]
  - HAEMATEMESIS [None]
